FAERS Safety Report 7543986-9 (Version None)
Quarter: 2011Q2

REPORT INFORMATION
  Report Type: 
  Country: None (occurrence: None)
  Receive Date: 20110613
  Receipt Date: 20041221
  Transmission Date: 20111010
  Serious: Yes (Life-Threatening)
  Sender: FDA-Public Use
  Company Number: PHHO2004JP10911

PATIENT
  Sex: Male
  Weight: 62 kg

DRUGS (6)
  1. TICLOPIDINE HCL [Concomitant]
  2. DIOVAN [Suspect]
     Indication: HYPERTENSION
     Dosage: 80 MG, QD
     Route: 048
     Dates: start: 20030619
  3. FAMOTIDINE [Concomitant]
     Indication: GASTRIC ULCER
  4. ISOSORBIDE DINITRATE [Concomitant]
     Indication: ANGINA PECTORIS
  5. DOXAZOSIN MESYLATE [Concomitant]
     Indication: HYPERTENSION
  6. BUFFERIN [Concomitant]
     Indication: ANGINA PECTORIS

REACTIONS (5)
  - ELECTROCARDIOGRAM ST SEGMENT DEPRESSION [None]
  - ELECTROCARDIOGRAM T WAVE INVERSION [None]
  - CORONARY ARTERY STENOSIS [None]
  - CHEST PAIN [None]
  - ANGINA PECTORIS [None]
